FAERS Safety Report 7952025-7 (Version None)
Quarter: 2011Q4

REPORT INFORMATION
  Report Type: 
  Country: None (occurrence: None)
  Receive Date: 20111201
  Receipt Date: 20111122
  Transmission Date: 20120403
  Serious: Yes (Hospitalization)
  Sender: FDA-Public Use
  Company Number: SE-B.I. PHARMACEUTICALS,INC./RIDGEFIELD-2011-RD-00089DE

PATIENT
  Sex: Male
  Weight: 77.4 kg

DRUGS (2)
  1. BI 1356 [Suspect]
     Indication: TYPE 2 DIABETES MELLITUS
     Dosage: 5 MG
     Route: 048
     Dates: start: 20110303, end: 20110502
  2. BI 1356 [Suspect]
     Dosage: 5 MG
     Route: 048
     Dates: start: 20110513

REACTIONS (1)
  - RETINAL MIGRAINE [None]
